FAERS Safety Report 5425265-9 (Version None)
Quarter: 2007Q3

REPORT INFORMATION
  Report Type: 
  Country: None (occurrence: None)
  Receive Date: 20070824
  Receipt Date: 20070813
  Transmission Date: 20080115
  Serious: Yes (Other)
  Sender: FDA-Public Use
  Company Number: US-PFIZER INC-2006102578

PATIENT
  Sex: Female
  Weight: 96.2 kg

DRUGS (8)
  1. CHANTIX [Suspect]
     Indication: SMOKING CESSATION THERAPY
  2. HUMULIN 70/30 [Concomitant]
     Route: 065
  3. LANTUS [Concomitant]
     Route: 065
  4. MONTELUKAST SODIUM [Concomitant]
     Route: 065
  5. STELAZINE [Concomitant]
     Route: 065
  6. ALTACE [Concomitant]
     Route: 065
  7. INTERFERON BETA [Concomitant]
     Route: 051
  8. NEXIUM [Concomitant]
     Route: 065

REACTIONS (7)
  - ASTHENIA [None]
  - FALL [None]
  - FATIGUE [None]
  - FEELING ABNORMAL [None]
  - ILL-DEFINED DISORDER [None]
  - SEDATION [None]
  - TOOTH EXTRACTION [None]
